FAERS Safety Report 9270330 (Version 3)
Quarter: 2013Q2

REPORT INFORMATION
  Report Type: Spontaneous
  Country: US (occurrence: US)
  Receive Date: 20130503
  Receipt Date: 20130613
  Transmission Date: 20140414
  Serious: Yes (Other)
  Sender: FDA-Public Use
  Company Number: US-ELI_LILLY_AND_COMPANY-US201205001955

PATIENT
  Age: 83 Year
  Sex: Female

DRUGS (11)
  1. FORTEO [Suspect]
     Indication: OSTEOPOROSIS
     Dosage: 20 UG, QD
     Route: 058
     Dates: start: 20110929
  2. FORTEO [Suspect]
     Dosage: UNK, QD
     Dates: end: 20130517
  3. ZANTAC [Concomitant]
     Indication: GASTROOESOPHAGEAL REFLUX DISEASE
  4. ASPIRIN [Concomitant]
     Dosage: 325 UNK, UNK
  5. CYSTINE [Concomitant]
  6. LEVOTHYROXINE [Concomitant]
     Dosage: 100 MG, QD
  7. ATENOLOL [Concomitant]
     Dosage: 25 MG, BID
  8. NORVASC [Concomitant]
     Dosage: 2.5 MG, QD
  9. CALCIUM 600 PLUS VITAMIN D [Concomitant]
     Dosage: 600 MG, UNK
  10. VITAMIN D [Concomitant]
     Dosage: 1000 MG, QD
  11. ANAGRELIDE [Concomitant]
     Dosage: 0.5 UNK, TID

REACTIONS (10)
  - Transient ischaemic attack [Unknown]
  - Essential thrombocythaemia [Unknown]
  - Weight decreased [Unknown]
  - Gastrointestinal inflammation [Unknown]
  - Palpitations [Unknown]
  - Injection site bruising [Unknown]
  - Hypertension [Not Recovered/Not Resolved]
  - Diarrhoea [Unknown]
  - Pruritus [Recovered/Resolved]
  - Muscle spasms [Unknown]
